FAERS Safety Report 9324782 (Version 1)
Quarter: 2013Q2

REPORT INFORMATION
  Report Type: Spontaneous
  Country: CA (occurrence: CA)
  Receive Date: 20130603
  Receipt Date: 20130603
  Transmission Date: 20140414
  Serious: No
  Sender: FDA-Public Use
  Company Number: CA-TEVA-408832USA

PATIENT
  Age: 18 Year
  Sex: Female

DRUGS (1)
  1. PLAN B ONE-STEP [Suspect]
     Indication: CONTRACEPTION
     Dosage: 2 PILLS, 2X0.75 MG
     Dates: start: 20130502, end: 20130502

REACTIONS (2)
  - Menstruation irregular [Recovered/Resolved]
  - Metrorrhagia [Not Recovered/Not Resolved]
